FAERS Safety Report 8953870 (Version 1)
Quarter: 2012Q4

REPORT INFORMATION
  Report Type: 
  Country: US (occurrence: US)
  Receive Date: 20121206
  Receipt Date: 20121206
  Transmission Date: 20130627
  Serious: Yes (Other)
  Sender: FDA-Public Use
  Company Number: CHPA2012US024600

PATIENT
  Age: 78 Year
  Sex: Male

DRUGS (1)
  1. VOLTAREN GEL [Suspect]
     Indication: OSTEOARTHRITIS
     Dosage: maybe 2 gr/twice a day
     Route: 061

REACTIONS (4)
  - Musculoskeletal pain [Not Recovered/Not Resolved]
  - Drug dispensing error [Unknown]
  - Underdose [Unknown]
  - Expired drug administered [Unknown]
